FAERS Safety Report 6200147-3 (Version None)
Quarter: 2009Q2

REPORT INFORMATION
  Report Type: 
  Country: None (occurrence: None)
  Receive Date: 20090522
  Receipt Date: 20090511
  Transmission Date: 20091009
  Serious: Yes (Death, Hospitalization)
  Sender: FDA-Public Use
  Company Number: AU-JNJFOC-20090502195

PATIENT
  Age: 6 Year

DRUGS (3)
  1. PARACETAMOL [Suspect]
  2. PARACETAMOL [Suspect]
     Indication: DRUG USE FOR UNKNOWN INDICATION
     Dosage: FREQUENT DOSING OVER SEVERAL DAYS
  3. CHEMOTHERAPY,  NOS [Concomitant]

REACTIONS (5)
  - ACCIDENTAL OVERDOSE [None]
  - COAGULOPATHY [None]
  - COMA HEPATIC [None]
  - HEPATIC NECROSIS [None]
  - HYPERBILIRUBINAEMIA [None]
